FAERS Safety Report 4884591-2 (Version None)
Quarter: 2005Q4

REPORT INFORMATION
  Report Type: 
  Country: None (occurrence: None)
  Receive Date: 20051201
  Receipt Date: 20050831
  Transmission Date: 20060501
  Serious: No
  Sender: FDA-Public Use
  Company Number: 2005PV001724

PATIENT
  Age: 74 Year
  Sex: Male
  Weight: 106.5953 kg

DRUGS (14)
  1. BYETTA [Suspect]
     Indication: DIABETES MELLITUS NON-INSULIN-DEPENDENT
     Dosage: 5 MCG;BID;SC
     Route: 058
     Dates: start: 20050701
  2. ACTOS [Concomitant]
  3. PRAVACHOL [Concomitant]
  4. ZETIA [Concomitant]
  5. COREG [Concomitant]
  6. COENZYME Q10 [Concomitant]
  7. TEMAZEPAM [Concomitant]
  8. NIACIN [Concomitant]
  9. FOLIC ACID [Concomitant]
  10. NEURONTIN [Concomitant]
  11. DIOVAN [Concomitant]
  12. MULTIVITAMIN [Concomitant]
  13. FISH OIL [Concomitant]
  14. GLUCOSAMINE [Concomitant]

REACTIONS (2)
  - DECREASED APPETITE [None]
  - WEIGHT DECREASED [None]
